FAERS Safety Report 18206464 (Version 1)
Quarter: 2020Q3

REPORT INFORMATION
  Report Type: Report from Study
  Country: BR (occurrence: BR)
  Receive Date: 20200828
  Receipt Date: 20200828
  Transmission Date: 20201103
  Serious: Yes (Other)
  Sender: FDA-Public Use
  Company Number: NVSC2020BR235199

PATIENT
  Age: 62 Year

DRUGS (1)
  1. EXELON [Suspect]
     Active Substance: RIVASTIGMINE TARTRATE
     Indication: PRODUCT USED FOR UNKNOWN INDICATION
     Dosage: 4.6 MG, QD (5 CM2, 9 MG RIVASTIGMINE BASE)
     Route: 062

REACTIONS (2)
  - Speech disorder [Unknown]
  - Dementia Alzheimer^s type [Unknown]
